FAERS Safety Report 8931506 (Version 1)
Quarter: 2012Q4

REPORT INFORMATION
  Report Type: 
  Country: JP (occurrence: JP)
  Receive Date: 20121128
  Receipt Date: 20121128
  Transmission Date: 20130627
  Serious: Yes (Hospitalization)
  Sender: FDA-Public Use
  Company Number: JP-ASTRAZENECA-2012SE75765

PATIENT
  Age: 22 Year
  Sex: Female
  Weight: 49 kg

DRUGS (2)
  1. ANAPEINE [Suspect]
     Indication: NERVE BLOCK
     Route: 053
  2. ANAPEINE [Suspect]
     Indication: NERVE BLOCK
     Dosage: Injected at 2 sites at 18.75 mg of each.
     Route: 053

REACTIONS (1)
  - Peripheral nerve palsy [Recovered/Resolved]
